FAERS Safety Report 16119063 (Version 4)
Quarter: 2019Q2

REPORT INFORMATION
  Report Type: Spontaneous
  Country: RU (occurrence: RU)
  Receive Date: 20190326
  Receipt Date: 20190608
  Transmission Date: 20190711
  Serious: Yes (Hospitalization, Other)
  Sender: FDA-Public Use
  Company Number: RU-UCBSA-2019012259

PATIENT
  Age: 21 Year

DRUGS (23)
  1. LAMOTRIGIN [Suspect]
     Active Substance: LAMOTRIGINE
     Indication: EPILEPSY
     Dosage: 50MG/DAY
  2. VALPROIC ACID. [Suspect]
     Active Substance: VALPROIC ACID
     Indication: EPILEPSY
     Dosage: 1500 MG/DAY
     Dates: start: 201807, end: 2018
  3. NO-SPA [Concomitant]
     Active Substance: DROTAVERINE HYDROCHLORIDE
     Indication: DYSMENORRHOEA
  4. VALPROIC ACID. [Suspect]
     Active Substance: VALPROIC ACID
     Dosage: 1000 MG/DAY
     Dates: start: 2018, end: 2018
  5. REMENS [Concomitant]
     Indication: DYSMENORRHOEA
  6. KEPPRA [Suspect]
     Active Substance: LEVETIRACETAM
     Indication: EPILEPSY
     Dosage: UPTO 2000MG/DAY
     Dates: start: 2018, end: 2018
  7. BRIVIACT [Suspect]
     Active Substance: BRIVARACETAM
     Indication: PRODUCT USED FOR UNKNOWN INDICATION
     Dosage: 100 MG PER DAY, 2X/DAY (BID)
     Dates: start: 201812, end: 201904
  8. KEPPRA [Suspect]
     Active Substance: LEVETIRACETAM
     Dosage: 1000MG/DAY
     Dates: start: 2018, end: 2018
  9. DEPAKINE [Concomitant]
     Active Substance: VALPROATE SODIUM
     Indication: PRODUCT USED FOR UNKNOWN INDICATION
     Dosage: 1500 DAILY DOSE
  10. QUETIAPINE. [Concomitant]
     Active Substance: QUETIAPINE
     Indication: PRODUCT USED FOR UNKNOWN INDICATION
  11. CONVULEX [Concomitant]
     Indication: EPILEPSY
  12. BENZOBARBITAL [Concomitant]
     Active Substance: BENZOBARBITAL
  13. NUROFEN [Concomitant]
     Active Substance: IBUPROFEN
  14. BRIVIACT [Suspect]
     Active Substance: BRIVARACETAM
     Indication: OFF LABEL USE
  15. KEPPRA [Suspect]
     Active Substance: LEVETIRACETAM
     Dosage: 1500 MG
     Dates: start: 2018, end: 201812
  16. THIOPENTAL SODIUM. [Concomitant]
     Active Substance: THIOPENTAL SODIUM
  17. MAGNELIS B6 FORTE [Concomitant]
  18. PHENYTOIN. [Concomitant]
     Active Substance: PHENYTOIN
  19. DIACARB [Concomitant]
  20. DICYNONE [Concomitant]
     Active Substance: ETHAMSYLATE
     Indication: DYSMENORRHOEA
  21. LAMOTRIGIN [Suspect]
     Active Substance: LAMOTRIGINE
     Dosage: 25MG/DAY
     Dates: start: 2018
  22. AMINAZIN [Concomitant]
     Active Substance: CHLORPROMAZINE HYDROCHLORIDE
     Indication: EPILEPSY
  23. HEPA-MERZ [Concomitant]

REACTIONS (11)
  - Self-injurious ideation [Unknown]
  - Asthenia [Unknown]
  - Sleep disorder [Unknown]
  - Somnolence [Unknown]
  - Depression [Unknown]
  - Psychotic disorder [Unknown]
  - Intentional product misuse [Unknown]
  - Mood disorder due to a general medical condition [Unknown]
  - Status epilepticus [Recovered/Resolved]
  - Off label use [Unknown]
  - Intentional self-injury [Unknown]

NARRATIVE: CASE EVENT DATE: 2018
